FAERS Safety Report 10068562 (Version 1)
Quarter: 2014Q2

REPORT INFORMATION
  Report Type: Spontaneous
  Country: AU (occurrence: AU)
  Receive Date: 20140409
  Receipt Date: 20140409
  Transmission Date: 20141212
  Serious: Yes (Other)
  Sender: FDA-Public Use
  Company Number: PHHY2014AU042456

PATIENT
  Age: 65 Year
  Sex: Female

DRUGS (4)
  1. LETROZOLE [Suspect]
     Indication: BREAST CANCER METASTATIC
     Dosage: UNK UKN, UNK
     Dates: start: 201003
  2. LETROZOLE [Suspect]
     Indication: METASTASES TO BONE
  3. LETROZOLE [Suspect]
     Indication: METASTASES TO PLEURA
  4. BONDRONAT [Concomitant]
     Dosage: UNK UKN, UNK
     Dates: start: 201003

REACTIONS (4)
  - Pulmonary mass [Unknown]
  - Breast cancer metastatic [Unknown]
  - Malignant neoplasm progression [Unknown]
  - Metastases to bone [Unknown]
